FAERS Safety Report 17007605 (Version 1)
Quarter: 2019Q4

REPORT INFORMATION
  Report Type: Spontaneous
  Country: US (occurrence: US)
  Receive Date: 20191108
  Receipt Date: 20191108
  Transmission Date: 20200122
  Serious: No
  Sender: FDA-Public Use
  Company Number: US-TEVA-2019-US-1133137

PATIENT
  Age: 26 Year
  Sex: Female

DRUGS (2)
  1. CLONAZEPAM. [Suspect]
     Active Substance: CLONAZEPAM
     Indication: PANIC DISORDER
  2. CLONAZEPAM. [Suspect]
     Active Substance: CLONAZEPAM
     Indication: ANXIETY
     Route: 065
     Dates: start: 201909

REACTIONS (6)
  - Anxiety [Unknown]
  - Feeling abnormal [Unknown]
  - Cardiac disorder [Unknown]
  - Product substitution issue [Unknown]
  - Panic reaction [Unknown]
  - Disorientation [Unknown]
